FAERS Safety Report 22055540 (Version 5)
Quarter: 2025Q3

REPORT INFORMATION
  Report Type: Spontaneous
  Country: IN (occurrence: IN)
  Receive Date: 20230302
  Receipt Date: 20250714
  Transmission Date: 20251021
  Serious: Yes (Other)
  Sender: PFIZER
  Company Number: IN-PFIZER INC-202200574601

PATIENT
  Age: 49 Year
  Sex: Male
  Weight: 90 kg

DRUGS (8)
  1. LORLATINIB [Suspect]
     Active Substance: LORLATINIB
     Indication: Lung neoplasm malignant
     Dosage: 100 MG, 1X/DAY
     Route: 048
     Dates: start: 20211008
  2. LORLATINIB [Suspect]
     Active Substance: LORLATINIB
     Indication: Metastases to central nervous system
  3. PHENIRAMINE MALEATE [Concomitant]
     Active Substance: PHENIRAMINE MALEATE
     Route: 042
  4. BENRALIZUMAB [Concomitant]
     Active Substance: BENRALIZUMAB
  5. LENVA [Concomitant]
     Dosage: 4 MG, 1X/DAY (P/O OD ON ALT DAY)
     Route: 048
  6. CLOCIP L [Concomitant]
     Dosage: POWDER L/A BD
  7. FLUCONAZOLE [Concomitant]
     Active Substance: FLUCONAZOLE
     Dosage: 150 MG, 1X/DAY (X 7 DAYS)
     Route: 048
  8. DIAMOX SEQUELS [Concomitant]
     Active Substance: ACETAZOLAMIDE
     Dosage: 250 MG, 3X/DAY

REACTIONS (6)
  - Metastases to central nervous system [Unknown]
  - Malignant neoplasm progression [Unknown]
  - Type 2 diabetes mellitus [Unknown]
  - Weight increased [Unknown]
  - Hypertension [Unknown]
  - Oedema [Unknown]
